FAERS Safety Report 10027571 (Version 3)
Quarter: 2014Q4

REPORT INFORMATION
  Report Type: Spontaneous
  Country: US (occurrence: US)
  Receive Date: 20140321
  Receipt Date: 20141118
  Transmission Date: 20150528
  Serious: Yes (Hospitalization)
  Sender: FDA-Public Use
  Company Number: US-BAYER-2014-042670

PATIENT
  Age: 28 Year
  Sex: Female
  Weight: 59 kg

DRUGS (4)
  1. MIRENA [Suspect]
     Active Substance: LEVONORGESTREL
     Indication: CONTRACEPTION
     Dosage: 20 MCG/24HR, CONT
     Route: 015
     Dates: start: 20090227, end: 20120323
  2. SINUS [Concomitant]
     Active Substance: ACETAMINOPHEN\CHLORPHENIRAMINE MALEATE\PHENYLEPHRINE HYDROCHLORIDE
     Dosage: UNK UNK, QD
     Dates: start: 20120209
  3. ARMOUR THYROID [Concomitant]
     Active Substance: THYROID, PORCINE\THYROID, UNSPECIFIED
     Indication: HYPOTHYROIDISM
     Dosage: UNK
     Dates: start: 2006
  4. ADVIL COLD [Concomitant]
     Dosage: UNK UNK, QD
     Dates: start: 20120209

REACTIONS (5)
  - Uterine perforation [None]
  - Emotional distress [None]
  - Device issue [None]
  - Pain [None]
  - Injury [None]

NARRATIVE: CASE EVENT DATE: 2012
